FAERS Safety Report 18607937 (Version 1)
Quarter: 2020Q4

REPORT INFORMATION
  Report Type: Spontaneous
  Country: US (occurrence: US)
  Receive Date: 20201211
  Receipt Date: 20201211
  Transmission Date: 20210114
  Serious: Yes (Other)
  Sender: FDA-Public Use
  Company Number: US-JAZZ-JPI-P-009543

PATIENT
  Age: 56 Year
  Sex: Male

DRUGS (5)
  1. TRAMADOL. [Concomitant]
     Active Substance: TRAMADOL
  2. DEXMETHYLPHENIDATE [Concomitant]
     Active Substance: DEXMETHYLPHENIDATE HYDROCHLORIDE
     Dates: end: 201001
  3. XYREM [Suspect]
     Active Substance: SODIUM OXYBATE
     Indication: CATAPLEXY
     Route: 048
     Dates: start: 20091218, end: 20091221
  4. XYREM [Suspect]
     Active Substance: SODIUM OXYBATE
     Route: 048
     Dates: start: 20100104
  5. XYREM [Suspect]
     Active Substance: SODIUM OXYBATE
     Indication: NARCOLEPSY
     Route: 048
     Dates: start: 20091215, end: 20091217

REACTIONS (14)
  - Visual impairment [Unknown]
  - Balance disorder [Unknown]
  - Gait disturbance [Unknown]
  - Malaise [Recovered/Resolved]
  - Eye pruritus [Unknown]
  - Dry eye [Unknown]
  - Functional gastrointestinal disorder [Recovering/Resolving]
  - Bladder dysfunction [Recovering/Resolving]
  - Hypertension [Recovered/Resolved]
  - Gastric disorder [Unknown]
  - Mood altered [Unknown]
  - Therapeutic response unexpected [Unknown]
  - Chest pain [Recovered/Resolved]
  - Taste disorder [Unknown]

NARRATIVE: CASE EVENT DATE: 200912
